FAERS Safety Report 20311461 (Version 3)
Quarter: 2022Q1

REPORT INFORMATION
  Report Type: Spontaneous
  Country: AU (occurrence: AU)
  Receive Date: 20220108
  Receipt Date: 20220316
  Transmission Date: 20220424
  Serious: Yes (Death, Life-Threatening, Other)
  Sender: FDA-Public Use
  Company Number: AU-SA-SAC20220104001156

PATIENT
  Age: 9 Year
  Sex: Female

DRUGS (1)
  1. MYOZYME [Suspect]
     Active Substance: ALGLUCOSIDASE ALFA

REACTIONS (2)
  - Cardio-respiratory arrest [Fatal]
  - Brief resolved unexplained event [Unknown]

NARRATIVE: CASE EVENT DATE: 20211231
